FAERS Safety Report 25178594 (Version 1)
Quarter: 2025Q2

REPORT INFORMATION
  Report Type: Report from Study
  Country: US (occurrence: US)
  Receive Date: 20250409
  Receipt Date: 20250409
  Transmission Date: 20250717
  Serious: No
  Sender: ACADIA PHARMACEUTICALS
  Company Number: US-ACADIA PHARMACEUTICALS INC.-ACA-2025-PIM-004083

PATIENT
  Sex: Female

DRUGS (14)
  1. NUPLAZID [Suspect]
     Active Substance: PIMAVANSERIN TARTRATE
     Indication: Parkinson^s disease
     Dosage: 34 MILLIGRAM, QD
     Route: 048
  2. POTASSIUM [Concomitant]
     Active Substance: POTASSIUM
  3. METOLAZONE [Concomitant]
     Active Substance: METOLAZONE
  4. GOCOVRI [Concomitant]
     Active Substance: AMANTADINE
  5. TOUJEO [Concomitant]
     Active Substance: INSULIN GLARGINE
  6. CARBIDOPA [Concomitant]
     Active Substance: CARBIDOPA
  7. DULOXETINE [Concomitant]
     Active Substance: DULOXETINE
  8. AMANTADINE [Concomitant]
     Active Substance: AMANTADINE
  9. VITAMIN D3 [Concomitant]
     Active Substance: CHOLECALCIFEROL
  10. ROSUVASTATIN [Concomitant]
     Active Substance: ROSUVASTATIN
  11. PRAMIPEXOLE [Concomitant]
     Active Substance: PRAMIPEXOLE
  12. GLIMEPIRIDE [Concomitant]
     Active Substance: GLIMEPIRIDE
  13. GEMTESA [Concomitant]
     Active Substance: VIBEGRON
  14. VITAMIN B [Concomitant]
     Active Substance: VITAMIN B

REACTIONS (1)
  - Peripheral swelling [Unknown]
